FAERS Safety Report 19413081 (Version 1)
Quarter: 2021Q2

REPORT INFORMATION
  Report Type: Spontaneous
  Country: US (occurrence: US)
  Receive Date: 20210614
  Receipt Date: 20210614
  Transmission Date: 20210717
  Serious: No
  Sender: FDA-Public Use
  Company Number: US-GALDERMA-US2021012265

PATIENT
  Age: 14 Year
  Sex: Male

DRUGS (11)
  1. PROACTIV MD DAILY OIL CONTROL SPF 30 [Suspect]
     Active Substance: AVOBENZONE\OCTISALATE\OCTOCRYLENE
     Indication: ERYTHEMA
  2. PROACTIV MD ADAPALENE ACNE TREATMENT [Suspect]
     Active Substance: ADAPALENE
     Indication: ERYTHEMA
  3. PROACTIV MD DEEP CLEANSING FACE WASH [Concomitant]
     Active Substance: COSMETICS
     Indication: ACNE
     Route: 061
     Dates: start: 20200721, end: 202102
  4. PROACTIV MD DEEP CLEANSING FACE WASH [Concomitant]
     Active Substance: COSMETICS
     Indication: ERYTHEMA
  5. MULTIVITAMINS [Concomitant]
     Active Substance: VITAMINS
     Indication: PRODUCT USED FOR UNKNOWN INDICATION
  6. PROACTIV MD ADAPALENE ACNE TREATMENT [Suspect]
     Active Substance: ADAPALENE
     Indication: ACNE
     Dosage: 0.1%
     Route: 061
     Dates: start: 20200721, end: 202102
  7. PROACTIV MD DAILY OIL CONTROL SPF 30 [Suspect]
     Active Substance: AVOBENZONE\OCTISALATE\OCTOCRYLENE
     Indication: ACNE
     Route: 061
     Dates: start: 20200721, end: 202102
  8. PROACTIV DEEP CLEANSING WASH [Concomitant]
     Active Substance: SALICYLIC ACID
     Indication: ERYTHEMA
  9. PROACTIV REDNESS RELIEF SERUM [Concomitant]
     Indication: ACNE
     Route: 061
     Dates: start: 20200721, end: 202102
  10. PROACTIV REDNESS RELIEF SERUM [Concomitant]
     Indication: ERYTHEMA
  11. PROACTIV DEEP CLEANSING WASH [Concomitant]
     Active Substance: SALICYLIC ACID
     Indication: ACNE
     Route: 061
     Dates: start: 20200721, end: 202102

REACTIONS (2)
  - Drug ineffective [Unknown]
  - Skin exfoliation [Recovered/Resolved]

NARRATIVE: CASE EVENT DATE: 20200804
